FAERS Safety Report 21422753 (Version 2)
Quarter: 2023Q2

REPORT INFORMATION
  Report Type: Spontaneous
  Country: AR (occurrence: AR)
  Receive Date: 20221007
  Receipt Date: 20230406
  Transmission Date: 20230721
  Serious: Yes (Hospitalization, Other)
  Sender: FDA-Public Use
  Company Number: AR-PFIZER INC-PV202200077796

PATIENT
  Age: 71 Year
  Sex: Female

DRUGS (1)
  1. XELJANZ XR [Suspect]
     Active Substance: TOFACITINIB CITRATE
     Indication: Rheumatoid arthritis
     Dosage: 11 MG, 1X/DAY
     Dates: start: 20200930

REACTIONS (5)
  - Cerebrovascular accident [Recovered/Resolved]
  - COVID-19 [Recovered/Resolved]
  - Influenza [Recovered/Resolved]
  - Muscular weakness [Unknown]
  - Expired product administered [Unknown]

NARRATIVE: CASE EVENT DATE: 20220101
